FAERS Safety Report 9168478 (Version 1)
Quarter: 2013Q1

REPORT INFORMATION
  Report Type: Spontaneous
  Country: US (occurrence: US)
  Receive Date: 20130318
  Receipt Date: 20130318
  Transmission Date: 20140127
  Serious: Yes (Hospitalization)
  Sender: FDA-Public Use
  Company Number: PHEH2013US005906

PATIENT
  Age: 32 Year
  Sex: Female

DRUGS (14)
  1. TOBI [Suspect]
     Indication: CYSTIC FIBROSIS
     Dosage: 300 MG, BID
     Dates: end: 201209
  2. TOBI [Suspect]
     Dosage: ONCE IN A DAY
  3. PULMOZYME [Concomitant]
     Dosage: UNK
  4. CYCLOSPORINE [Concomitant]
     Dosage: UNK
  5. METOPROLOL [Concomitant]
     Dosage: UNK
  6. ZITHROMAX [Concomitant]
     Dosage: UNK
  7. AMBIEN [Concomitant]
     Dosage: UNK
  8. NEXIUM [Concomitant]
     Dosage: UNK
  9. CLARITIN [Concomitant]
     Dosage: UNK
  10. AQUADEKS [Concomitant]
     Dosage: UNK
  11. CALCIUM D [Concomitant]
     Dosage: UNK
  12. MIRALAX [Concomitant]
     Dosage: UNK
  13. XANAX [Concomitant]
     Dosage: UNK
  14. CREON [Concomitant]
     Dosage: UNK

REACTIONS (2)
  - Renal disorder [Recovering/Resolving]
  - Dehydration [Recovering/Resolving]
